FAERS Safety Report 25151616 (Version 1)
Quarter: 2025Q2

REPORT INFORMATION
  Report Type: Spontaneous
  Country: PL (occurrence: PL)
  Receive Date: 20250402
  Receipt Date: 20250402
  Transmission Date: 20250717
  Serious: Yes (Other)
  Sender: AMGEN
  Company Number: PL-AMGEN-POLSP2025060818

PATIENT
  Sex: Male

DRUGS (5)
  1. VECTIBIX [Suspect]
     Active Substance: PANITUMUMAB
     Indication: Colon cancer metastatic
     Dosage: UNK, Q2WK, EVERY 2 WEEKS
     Route: 065
     Dates: start: 20211108
  2. VECTIBIX [Suspect]
     Active Substance: PANITUMUMAB
     Dosage: UNK, Q2WK, EVERY 2 WEEKS
     Route: 065
  3. LEUCOVORIN [Concomitant]
     Active Substance: LEUCOVORIN\LEUCOVORIN CALCIUM
     Indication: Neoplasm malignant
     Dosage: UNK, Q2WK,  EVERY 2 WEEKS
     Route: 065
     Dates: start: 20211108
  4. FLUOROURACIL [Concomitant]
     Active Substance: FLUOROURACIL
     Indication: Neoplasm malignant
     Dosage: UNK, Q2WK,  EVERY 2 WEEKS
     Dates: start: 20211108
  5. IRINOTECAN [Concomitant]
     Active Substance: IRINOTECAN
     Indication: Neoplasm malignant
     Dosage: UNK, Q2WK,  EVERY 2 WEEKS
     Dates: start: 20211108

REACTIONS (4)
  - Colon cancer metastatic [Unknown]
  - Diarrhoea [Unknown]
  - Skin toxicity [Unknown]
  - Therapy partial responder [Unknown]
